FAERS Safety Report 6674026-1 (Version None)
Quarter: 2010Q2

REPORT INFORMATION
  Report Type: 
  Country: None (occurrence: None)
  Receive Date: 20100409
  Receipt Date: 20100408
  Transmission Date: 20101027
  Serious: Yes (Congenital Anomaly, Other)
  Sender: FDA-Public Use
  Company Number: CA-RANBAXY-2010US-32943

PATIENT

DRUGS (1)
  1. ISOTRETINOIN [Suspect]
     Indication: DRUG USE FOR UNKNOWN INDICATION
     Dosage: UNK, UNK
     Route: 065

REACTIONS (3)
  - CONGENITAL ANOMALY IN OFFSPRING [None]
  - DRUG EXPOSURE DURING PREGNANCY [None]
  - PREGNANCY [None]
